FAERS Safety Report 24598517 (Version 3)
Quarter: 2025Q3

REPORT INFORMATION
  Report Type: Spontaneous
  Country: JP (occurrence: JP)
  Receive Date: 20241110
  Receipt Date: 20250803
  Transmission Date: 20251021
  Serious: Yes (Death, Other)
  Sender: ALEXION PHARMACEUTICALS
  Company Number: JP-ASTRAZENECA-240118561_064320_P_1

PATIENT
  Age: 88 Year
  Sex: Female

DRUGS (4)
  1. ANDEXXA [Suspect]
     Active Substance: ANDEXANET ALFA
     Indication: Subarachnoid haemorrhage
     Dates: start: 20230710, end: 20230710
  2. ANDEXXA [Suspect]
     Active Substance: ANDEXANET ALFA
     Dates: start: 20230710, end: 20230710
  3. APIXABAN [Concomitant]
     Active Substance: APIXABAN
     Indication: Atrial fibrillation
  4. APIXABAN [Concomitant]
     Active Substance: APIXABAN

REACTIONS (1)
  - Pneumonia [Fatal]

NARRATIVE: CASE EVENT DATE: 20230801
